FAERS Safety Report 24815734 (Version 1)
Quarter: 2025Q1

REPORT INFORMATION
  Report Type: Spontaneous
  Country: US (occurrence: US)
  Receive Date: 20250107
  Receipt Date: 20250107
  Transmission Date: 20250409
  Serious: Yes (Hospitalization, Other)
  Sender: PFIZER
  Company Number: US-PFIZER INC-202500000260

PATIENT
  Age: 88 Year
  Sex: Female

DRUGS (1)
  1. XALKORI [Suspect]
     Active Substance: CRIZOTINIB
     Dosage: 250 MG, ORAL ADMINSTRATION, 1 A DAY
     Route: 048

REACTIONS (3)
  - Pneumonia [Unknown]
  - Immune system disorder [Unknown]
  - Off label use [Unknown]
